FAERS Safety Report 6493031-1 (Version None)
Quarter: 2009Q4

REPORT INFORMATION
  Report Type: 
  Country: None (occurrence: None)
  Receive Date: 20091211
  Receipt Date: 20091211
  Transmission Date: 20100525
  Serious: Yes (Disabling)
  Sender: FDA-Public Use
  Company Number: None

PATIENT
  Age: 50 Year
  Sex: Female
  Weight: 71 kg

DRUGS (15)
  1. HEPARIN [Suspect]
     Indication: THROMBOSIS PROPHYLAXIS
     Dosage: 100 UNITS DAILY IV
     Route: 042
     Dates: start: 20090414, end: 20090417
  2. LEVOFLOXACIN [Concomitant]
  3. ALBUTEROL [Concomitant]
  4. OMEPRAZOLE [Concomitant]
  5. LACTULOSE [Concomitant]
  6. KEPPRA [Concomitant]
  7. BETHANECHOL [Concomitant]
  8. VALPROIC ACID [Concomitant]
  9. METOCLOPRAMIDE [Concomitant]
  10. CLONAZEPAM [Concomitant]
  11. CEFEPIME [Concomitant]
  12. ONDANSETRON [Concomitant]
  13. ACETAMINOPHEN [Concomitant]
  14. PANTOPRAZOLE [Concomitant]
  15. AMPICILLIN AND SULBACTAM [Concomitant]

REACTIONS (1)
  - PLATELET COUNT DECREASED [None]
